FAERS Safety Report 7929915-4 (Version None)
Quarter: 2011Q4

REPORT INFORMATION
  Report Type: 
  Country: None (occurrence: None)
  Receive Date: 20111116
  Receipt Date: 20111031
  Transmission Date: 20120403
  Serious: Yes (Hospitalization, Other)
  Sender: FDA-Public Use
  Company Number: JPI-P-018007

PATIENT
  Age: 21 Year
  Sex: Male

DRUGS (6)
  1. XYREM [Suspect]
     Indication: FIBROMYALGIA
     Dosage: SEE IMAGE
     Route: 048
     Dates: start: 20110316
  2. XYREM [Suspect]
     Indication: SLEEP APNOEA SYNDROME
     Dosage: SEE IMAGE
     Route: 048
     Dates: start: 20110316
  3. XYREM [Suspect]
     Indication: MOVEMENT DISORDER
     Dosage: SEE IMAGE
     Route: 048
     Dates: start: 20110316
  4. XYREM [Suspect]
     Indication: FIBROMYALGIA
     Dosage: SEE IMAGE
     Route: 048
     Dates: start: 20100602
  5. XYREM [Suspect]
     Indication: SLEEP APNOEA SYNDROME
     Dosage: SEE IMAGE
     Route: 048
     Dates: start: 20100602
  6. XYREM [Suspect]
     Indication: MOVEMENT DISORDER
     Dosage: SEE IMAGE
     Route: 048
     Dates: start: 20100602

REACTIONS (3)
  - RESPIRATORY ARREST [None]
  - VIRAL INFECTION [None]
  - UNRESPONSIVE TO STIMULI [None]
